FAERS Safety Report 10047665 (Version 2)
Quarter: 2014Q2

REPORT INFORMATION
  Report Type: Spontaneous
  Country: JP (occurrence: None)
  Receive Date: 20140327
  Receipt Date: 20140424
  Transmission Date: 20141212
  Serious: Yes (Hospitalization)
  Sender: FDA-Public Use
  Company Number: ABR_01550_2014

PATIENT
  Age: 23 Year
  Sex: Female

DRUGS (1)
  1. GLIADEL [Suspect]
     Indication: ANAPLASTIC ASTROCYTOMA
     Dosage: 5 DF, 1X, INTRACEREBRAL
     Dates: start: 20130409, end: 20131025

REACTIONS (3)
  - Pyrexia [None]
  - Brain oedema [None]
  - Altered state of consciousness [None]
